FAERS Safety Report 4435548-7 (Version None)
Quarter: 2004Q3

REPORT INFORMATION
  Report Type: 
  Country: None (occurrence: None)
  Receive Date: 20040826
  Receipt Date: 20040811
  Transmission Date: 20050211
  Serious: Yes (Hospitalization)
  Sender: FDA-Public Use
  Company Number: 2004-0007356

PATIENT
  Age: 37 Year
  Sex: Male

DRUGS (5)
  1. VIREAD [Suspect]
     Indication: HIV INFECTION
     Dosage: 300 MG, 1 IN 1 D, ORAL
     Route: 048
     Dates: start: 20020801
  2. DIDANOSINE (DIDANOSINE) [Concomitant]
  3. KALETRA [Concomitant]
  4. AMPRENAVIR (AMPRENAVIR) [Concomitant]
  5. HYDROXYUREA [Concomitant]

REACTIONS (7)
  - DRUG INTERACTION [None]
  - FANCONI SYNDROME ACQUIRED [None]
  - LACTIC ACIDOSIS [None]
  - MITOCHONDRIAL DNA DELETION [None]
  - NEPHROGENIC DIABETES INSIPIDUS [None]
  - NEPHROPATHY TOXIC [None]
  - RENAL FAILURE ACUTE [None]
